FAERS Safety Report 19865689 (Version 4)
Quarter: 2022Q2

REPORT INFORMATION
  Report Type: Report from Study
  Country: JP (occurrence: JP)
  Receive Date: 20210922
  Receipt Date: 20220620
  Transmission Date: 20220721
  Serious: Yes (Hospitalization, Other)
  Sender: FDA-Public Use
  Company Number: JP-ROCHE-2913240

PATIENT
  Age: 67 Year
  Sex: Female
  Weight: 48 kg

DRUGS (21)
  1. ATEZOLIZUMAB [Suspect]
     Active Substance: ATEZOLIZUMAB
     Indication: Non-small cell lung cancer
     Route: 041
     Dates: start: 20191224, end: 20200128
  2. ATEZOLIZUMAB [Suspect]
     Active Substance: ATEZOLIZUMAB
     Dosage: 1200 MILLIGRAM, ONCE/4WEEKS
     Route: 041
     Dates: start: 20200220, end: 20200319
  3. ATEZOLIZUMAB [Suspect]
     Active Substance: ATEZOLIZUMAB
     Dosage: 1200 MILLIGRAM, ONCE/3WEEKS
     Route: 041
     Dates: start: 20200514, end: 20200604
  4. ATEZOLIZUMAB [Suspect]
     Active Substance: ATEZOLIZUMAB
     Dosage: 1200 MILLIGRAM, QD
     Route: 041
     Dates: start: 20200728, end: 20200728
  5. BEVACIZUMAB [Suspect]
     Active Substance: BEVACIZUMAB
     Indication: Non-small cell lung cancer
     Route: 041
     Dates: start: 20191224, end: 20200128
  6. BEVACIZUMAB [Suspect]
     Active Substance: BEVACIZUMAB
     Dosage: 15 MILLIGRAM/KILOGRAM, ONCE/4WEEKS
     Route: 041
     Dates: start: 20200220, end: 20200319
  7. BEVACIZUMAB [Suspect]
     Active Substance: BEVACIZUMAB
     Dosage: 15 MILLIGRAM/KILOGRAM, ONCE/3WEEKS
     Route: 041
     Dates: start: 20200514, end: 20200604
  8. BEVACIZUMAB [Suspect]
     Active Substance: BEVACIZUMAB
     Route: 041
     Dates: start: 20200728, end: 20200728
  9. CARBOPLATIN [Suspect]
     Active Substance: CARBOPLATIN
     Indication: Non-small cell lung cancer
     Dosage: AUC5
     Route: 041
     Dates: start: 20191224, end: 20200128
  10. CARBOPLATIN [Suspect]
     Active Substance: CARBOPLATIN
     Dosage: AUC5
     Route: 041
     Dates: start: 20200220, end: 20200319
  11. PEMETREXED DISODIUM [Suspect]
     Active Substance: PEMETREXED DISODIUM
     Indication: Non-small cell lung cancer
     Dosage: 500MG/M2,ONCE IN5WEEK
     Route: 041
     Dates: start: 20191224, end: 20200128
  12. PEMETREXED DISODIUM [Suspect]
     Active Substance: PEMETREXED DISODIUM
     Dosage: 500MG/M2,ONCE IN5WEEK
     Route: 041
     Dates: start: 20200220
  13. MAGNESIUM OXIDE [Concomitant]
     Active Substance: MAGNESIUM OXIDE
     Indication: Constipation
     Dosage: 330 MILLIGRAM, TID
     Route: 048
  14. SUVOREXANT [Concomitant]
     Active Substance: SUVOREXANT
     Indication: Non-small cell lung cancer
     Dosage: 20MG,ONCE IN1DAY
     Route: 048
     Dates: start: 20200318
  15. SENNOSIDES A AND B [Concomitant]
     Active Substance: SENNOSIDES A AND B
     Indication: Constipation
     Dosage: 12 MILLIGRAM, PRN, AS REQUIRED
     Route: 048
     Dates: start: 20200321
  16. SODIUM GUALENATE [Concomitant]
     Active Substance: SODIUM GUALENATE
     Indication: Infection prophylaxis
     Dosage: UNK
     Route: 048
     Dates: start: 20200702, end: 20210731
  17. LUNESTA [Concomitant]
     Active Substance: ESZOPICLONE
     Indication: Non-small cell lung cancer
     Dosage: 10 GRAM, BID
     Route: 048
     Dates: start: 20200702
  18. CALCIUM POLYSTYRENE SULFONATE [Concomitant]
     Active Substance: CALCIUM POLYSTYRENE SULFONATE
     Indication: Hyperkalaemia
     Dosage: 10G,ONCE IN12HOUR
     Route: 048
     Dates: start: 20200319
  19. ESCHERICHIA COLI;HYDROCORTISONE [Concomitant]
     Indication: Haemorrhoids
     Dosage: PROPER QUANTITY AND DOSE INTERVAL UNCERTAINTY
     Route: 061
     Dates: start: 20200322
  20. URSODIOL [Concomitant]
     Active Substance: URSODIOL
     Indication: Blood alkaline phosphatase increased
     Dosage: 200MG,ONCE IN8HOUR
     Route: 048
     Dates: start: 20200407
  21. KETOPROFEN [Concomitant]
     Active Substance: KETOPROFEN
     Indication: Arthralgia
     Dosage: PROPER QUANTITY AND DOSE INTERVAL UNCERTAINTY
     Route: 061
     Dates: start: 20200604

REACTIONS (7)
  - Pyrexia [Recovered/Resolved]
  - Haemolysis [Recovering/Resolving]
  - Second primary malignancy [Recovering/Resolving]
  - Cytopenia [Unknown]
  - Autoimmune haemolytic anaemia [Recovering/Resolving]
  - Pancytopenia [Unknown]
  - Acute myeloid leukaemia [Unknown]

NARRATIVE: CASE EVENT DATE: 20200728
